FAERS Safety Report 8889538 (Version 1)
Quarter: 2012Q4

REPORT INFORMATION
  Report Type: Spontaneous
  Country: US (occurrence: None)
  Receive Date: 20121105
  Receipt Date: 20121105
  Transmission Date: 20130627
  Serious: No
  Sender: FDA-Public Use
  Company Number: None

PATIENT
  Sex: Female
  Weight: 200 kg

DRUGS (1)
  1. CAPTOPRIL [Suspect]
     Dosage: 1 TABLET A DAY
     Dates: start: 20121103, end: 20121202

REACTIONS (3)
  - Lip swelling [None]
  - Diarrhoea [None]
  - Oedema peripheral [None]
